FAERS Safety Report 10922943 (Version 3)
Quarter: 2015Q2

REPORT INFORMATION
  Report Type: Spontaneous
  Country: IT (occurrence: IT)
  Receive Date: 20150317
  Receipt Date: 20150424
  Transmission Date: 20150821
  Serious: Yes (Other)
  Sender: FDA-Public Use
  Company Number: IT-PFIZER INC-2015091409

PATIENT
  Age: 72 Year
  Sex: Male

DRUGS (3)
  1. TOTALIP [Suspect]
     Active Substance: ATORVASTATIN
     Indication: HYPERCHOLESTEROLAEMIA
     Dosage: 10 MG, DAILY
     Route: 048
     Dates: start: 20150114, end: 20150226
  2. METFORMIN ACTAVIS [Concomitant]
     Active Substance: METFORMIN HYDROCHLORIDE
     Indication: DIABETES MELLITUS
     Dosage: 1500 MG, UNK
     Route: 048
  3. QUINAZIL [Concomitant]
     Indication: HYPERTENSION
     Dosage: 20 MG, UNK
     Route: 048

REACTIONS (6)
  - Skin ulcer [Recovering/Resolving]
  - Musculoskeletal stiffness [Recovering/Resolving]
  - Myalgia [Recovering/Resolving]
  - Tongue oedema [Recovering/Resolving]
  - Dyspnoea [Recovering/Resolving]
  - Vasculitis necrotising [Recovering/Resolving]

NARRATIVE: CASE EVENT DATE: 20150226
